FAERS Safety Report 9509508 (Version 3)
Quarter: 2013Q3

REPORT INFORMATION
  Report Type: Spontaneous
  Country: FR (occurrence: FR)
  Receive Date: 20130909
  Receipt Date: 20130928
  Transmission Date: 20140515
  Serious: Yes (Hospitalization, Disabling, Other)
  Sender: FDA-Public Use
  Company Number: FR-BAYER-2013-108499

PATIENT
  Age: 62 Year
  Sex: Male

DRUGS (3)
  1. NEXAVAR [Suspect]
     Dosage: 400 MG, BID
     Dates: start: 20121221
  2. NEXAVAR [Suspect]
     Dosage: UNK
     Dates: start: 20130215
  3. NEXAVAR [Suspect]
     Dosage: UNK
     Dates: end: 20130906

REACTIONS (6)
  - Ischaemic stroke [None]
  - Hemiplegia [None]
  - VIIth nerve paralysis [None]
  - Aphasia [None]
  - Coma [None]
  - Convulsion [None]
